FAERS Safety Report 13089609 (Version 2)
Quarter: 2017Q2

REPORT INFORMATION
  Report Type: Spontaneous
  Country: US (occurrence: US)
  Receive Date: 20170105
  Receipt Date: 20170417
  Transmission Date: 20170830
  Serious: No
  Sender: FDA-Public Use
  Company Number: US-ASTRAZENECA-2017SE00524

PATIENT
  Sex: Female

DRUGS (3)
  1. SYMBICORT [Suspect]
     Active Substance: BUDESONIDE\FORMOTEROL FUMARATE DIHYDRATE
     Indication: ASTHMA
     Dosage: 160/4.5MCG, 2 PUFFS TWICE A DAY
     Route: 055
     Dates: start: 201610
  2. PROAIR HFA [Concomitant]
     Active Substance: ALBUTEROL SULFATE
     Indication: RESPIRATORY DISORDER
  3. SYMBICORT [Suspect]
     Active Substance: BUDESONIDE\FORMOTEROL FUMARATE DIHYDRATE
     Indication: OBSTRUCTIVE AIRWAYS DISORDER
     Dosage: 160/4.5MCG, 2 PUFFS TWICE A DAY
     Route: 055
     Dates: start: 201610

REACTIONS (7)
  - Malaise [Unknown]
  - Cough [Unknown]
  - Product use issue [Unknown]
  - Device malfunction [Unknown]
  - Product use in unapproved indication [Not Recovered/Not Resolved]
  - Product use issue [Not Recovered/Not Resolved]
  - Intentional device misuse [Unknown]

NARRATIVE: CASE EVENT DATE: 201610
